FAERS Safety Report 7684289-1 (Version None)
Quarter: 2011Q3

REPORT INFORMATION
  Report Type: 
  Country: None (occurrence: None)
  Receive Date: 20110815
  Receipt Date: 20110711
  Transmission Date: 20111222
  Serious: No
  Sender: FDA-Public Use
  Company Number: US-BAYER-2011-060975

PATIENT
  Age: 45 Year
  Sex: Female

DRUGS (1)
  1. FINACEA [Suspect]
     Indication: ROSACEA
     Dosage: 1 DF, BID
     Route: 061
     Dates: start: 20040101

REACTIONS (1)
  - RASH MACULAR [None]
